FAERS Safety Report 9403167 (Version 1)
Quarter: 2013Q3

REPORT INFORMATION
  Report Type: Spontaneous
  Country: CH (occurrence: CH)
  Receive Date: 20130716
  Receipt Date: 20130716
  Transmission Date: 20140515
  Serious: Yes (Hospitalization)
  Sender: FDA-Public Use
  Company Number: CH-UCBSA-091306

PATIENT
  Sex: Male
  Weight: 95 kg

DRUGS (6)
  1. XYZAL [Suspect]
     Route: 048
  2. OMEPRAZOLE [Suspect]
     Route: 048
  3. AERIUS [Suspect]
     Route: 048
  4. ZADITEN [Suspect]
     Route: 048
  5. ZANTIC [Suspect]
     Route: 048
  6. CALCIMAGON D3 [Concomitant]
     Route: 048

REACTIONS (2)
  - Hepatic enzyme increased [Not Recovered/Not Resolved]
  - Hepatic steatosis [Not Recovered/Not Resolved]
